FAERS Safety Report 15144609 (Version 1)
Quarter: 2018Q3

REPORT INFORMATION
  Report Type: Spontaneous
  Country: NL (occurrence: NL)
  Receive Date: 20180713
  Receipt Date: 20180713
  Transmission Date: 20181010
  Serious: Yes (Other)
  Sender: FDA-Public Use
  Company Number: NL-SA-2018SA178434

PATIENT
  Age: 40 Year
  Sex: Female
  Weight: 65 kg

DRUGS (1)
  1. HYDROCORTISONE. [Suspect]
     Active Substance: HYDROCORTISONE
     Dosage: UNK, BID
     Route: 003
     Dates: start: 20170606, end: 20170806

REACTIONS (8)
  - Lip swelling [Recovering/Resolving]
  - Hormone level abnormal [Unknown]
  - Rebound eczema [Recovering/Resolving]
  - Skin tightness [Recovering/Resolving]
  - Steroid withdrawal syndrome [Recovering/Resolving]
  - Oral discomfort [Recovering/Resolving]
  - Weight increased [Unknown]
  - Lip exfoliation [Recovering/Resolving]

NARRATIVE: CASE EVENT DATE: 20170609
